FAERS Safety Report 4691770-6 (Version None)
Quarter: 2005Q2

REPORT INFORMATION
  Report Type: 
  Country: None (occurrence: None)
  Receive Date: 20050615
  Receipt Date: 20050615
  Transmission Date: 20051028
  Serious: Yes (Death)
  Sender: FDA-Public Use
  Company Number: None

PATIENT
  Age: 64 Year
  Sex: Male
  Weight: 111.5849 kg

DRUGS (4)
  1. OXALIPLATIN 200 MG SANOFI-SYNTHELABO [Suspect]
     Indication: COLON CANCER METASTATIC
     Dosage: 200 MG EVERY 2 WEEKS INTRAVENOUS
     Route: 042
     Dates: start: 20041101, end: 20050404
  2. LEUCOVORIN [Concomitant]
  3. FLUOROURACIL [Concomitant]
  4. FLUOROURACIL [Concomitant]

REACTIONS (14)
  - ACIDOSIS [None]
  - ACUTE RESPIRATORY DISTRESS SYNDROME [None]
  - HAEMODIALYSIS [None]
  - HYPERKALAEMIA [None]
  - HYPOTENSION [None]
  - LIVER FUNCTION TEST ABNORMAL [None]
  - LUNG INFILTRATION [None]
  - MULTI-ORGAN FAILURE [None]
  - PNEUMOTHORAX [None]
  - PULMONARY FIBROSIS [None]
  - RENAL FAILURE ACUTE [None]
  - RESPIRATORY ACIDOSIS [None]
  - RESPIRATORY FAILURE [None]
  - SYSTEMIC INFLAMMATORY RESPONSE SYNDROME [None]
